FAERS Safety Report 9282138 (Version 1)
Quarter: 2013Q2

REPORT INFORMATION
  Report Type: Spontaneous
  Country: US (occurrence: None)
  Receive Date: 20130508
  Receipt Date: 20130508
  Transmission Date: 20140414
  Serious: No
  Sender: FDA-Public Use
  Company Number: None

PATIENT
  Age: 54 Year
  Sex: Male

DRUGS (1)
  1. LOSARTAN [Suspect]
     Indication: HYPERTENSION
     Dates: start: 20110328, end: 20111027

REACTIONS (2)
  - Drug-induced liver injury [None]
  - Cholestasis [None]
